FAERS Safety Report 26198041 (Version 1)
Quarter: 2025Q4

REPORT INFORMATION
  Report Type: Spontaneous
  Country: US (occurrence: None)
  Receive Date: 20251224
  Receipt Date: 20251224
  Transmission Date: 20260117
  Serious: Yes (Life-Threatening, Other)
  Sender: APOTEX
  Company Number: US-APOTEX-2025AP034624

PATIENT
  Age: 83 Year
  Sex: Male

DRUGS (2)
  1. METFORMIN [Suspect]
     Active Substance: METFORMIN HYDROCHLORIDE
     Indication: Diabetes mellitus
     Dosage: UNK
     Route: 065
  2. COLCHICINE [Concomitant]
     Active Substance: COLCHICINE
     Indication: Pericardial effusion
     Dosage: UNK
     Route: 065

REACTIONS (1)
  - Lactic acidosis [Unknown]
